FAERS Safety Report 10742632 (Version 2)
Quarter: 2015Q1

REPORT INFORMATION
  Report Type: Report from Study
  Country: US (occurrence: US)
  Receive Date: 20150127
  Receipt Date: 20150217
  Transmission Date: 20150721
  Serious: Yes (Hospitalization, Other)
  Sender: FDA-Public Use
  Company Number: PHEH2015US001622

PATIENT
  Sex: Female

DRUGS (2)
  1. NEORAL [Suspect]
     Active Substance: CYCLOSPORINE
     Indication: PRODUCT USED FOR UNKNOWN INDICATION
     Dosage: 75 MG, BID
     Route: 048
  2. NEORAL [Suspect]
     Active Substance: CYCLOSPORINE
     Dosage: 2 DF, BID
     Route: 048

REACTIONS (11)
  - Glomerulosclerosis [Unknown]
  - Dyspnoea [Recovering/Resolving]
  - Hypertension [Unknown]
  - Hypersensitivity [Unknown]
  - Oedema peripheral [Unknown]
  - Proteinuria [Unknown]
  - Renal cyst [Unknown]
  - Hyperlipidaemia [Unknown]
  - Oxygen consumption decreased [Recovering/Resolving]
  - Chronic kidney disease [Unknown]
  - Acute kidney injury [Unknown]
